FAERS Safety Report 18624891 (Version 2)
Quarter: 2020Q4

REPORT INFORMATION
  Report Type: Spontaneous
  Country: AU (occurrence: AU)
  Receive Date: 20201216
  Receipt Date: 20201222
  Transmission Date: 20210114
  Serious: Yes (Death, Hospitalization, Disabling, Other)
  Sender: FDA-Public Use
  Company Number: AU-009507513-2012AUS005264

PATIENT
  Age: 74 Year
  Sex: Male

DRUGS (5)
  1. KEYTRUDA [Suspect]
     Active Substance: PEMBROLIZUMAB
     Indication: NON-SMALL CELL LUNG CANCER
     Dosage: UNK, CYCLE 2 (C2)
     Route: 042
     Dates: start: 20200630, end: 20200630
  2. CARBOPLATIN. [Suspect]
     Active Substance: CARBOPLATIN
     Dosage: UNK, CYCLE 2 (C2)
     Dates: start: 20200630
  3. KEYTRUDA [Suspect]
     Active Substance: PEMBROLIZUMAB
     Indication: METASTATIC SQUAMOUS CELL CARCINOMA
     Dosage: UNK, CYCLE 1 (C1)
     Route: 042
     Dates: start: 20200602
  4. PACLITAXEL. [Suspect]
     Active Substance: PACLITAXEL
     Indication: METASTATIC SQUAMOUS CELL CARCINOMA
     Dosage: UNK, CYCLE (C1)
     Dates: start: 20200602
  5. CARBOPLATIN. [Suspect]
     Active Substance: CARBOPLATIN
     Indication: METASTATIC SQUAMOUS CELL CARCINOMA
     Dosage: UNK, CYCLE 1 (C1)
     Dates: start: 20200602

REACTIONS (11)
  - Therapy partial responder [Unknown]
  - Asthenia [Unknown]
  - Myositis [Not Recovered/Not Resolved]
  - Myositis [Unknown]
  - Spinal compression fracture [Unknown]
  - Dyspnoea [Unknown]
  - Inappropriate schedule of product administration [Unknown]
  - Death [Fatal]
  - Myasthenia gravis [Not Recovered/Not Resolved]
  - Malignant neoplasm progression [Unknown]
  - Chest pain [Unknown]

NARRATIVE: CASE EVENT DATE: 20200712
